FAERS Safety Report 11927999 (Version 3)
Quarter: 2016Q1

REPORT INFORMATION
  Report Type: Spontaneous
  Country: JP (occurrence: JP)
  Receive Date: 20160119
  Receipt Date: 20160216
  Transmission Date: 20160526
  Serious: Yes (Death)
  Sender: FDA-Public Use
  Company Number: JP-009507513-1512JPN006840

PATIENT
  Age: 81 Year
  Sex: Male

DRUGS (8)
  1. CUBICIN [Suspect]
     Active Substance: DAPTOMYCIN
     Indication: STAPHYLOCOCCAL INFECTION
     Dosage: 6 MG/KG, QD
     Route: 041
     Dates: start: 20150211, end: 20150314
  2. CEFTAZIDIME. [Concomitant]
     Active Substance: CEFTAZIDIME
     Indication: SEPSIS
     Dosage: 1 G, BID
     Route: 041
     Dates: start: 20150225, end: 20150306
  3. AMIODARONE HYDROCHLORIDE. [Concomitant]
     Active Substance: AMIODARONE HYDROCHLORIDE
     Dosage: 100 MG, BID
     Route: 048
  4. FLIVAS [Concomitant]
     Active Substance: NAFTOPIDIL
     Dosage: 25 MG, QD
     Route: 048
  5. DEPAKENE [Concomitant]
     Active Substance: VALPROIC ACID
     Dosage: 600 MG, QD
     Route: 048
  6. CUBICIN [Suspect]
     Active Substance: DAPTOMYCIN
     Indication: SEPSIS
  7. MAGLAX (MAGNESIUM OXIDE) [Concomitant]
     Active Substance: MAGNESIUM OXIDE
     Dosage: 250 MG, TID
     Route: 048
  8. HERBAL NOS [Concomitant]
     Active Substance: HERBALS
     Dosage: 2.5 G, TID
     Route: 048

REACTIONS (2)
  - Endocarditis [Fatal]
  - Drug resistance [Unknown]

NARRATIVE: CASE EVENT DATE: 201503
